FAERS Safety Report 5379993-4 (Version None)
Quarter: 2007Q3

REPORT INFORMATION
  Report Type: 
  Country: None (occurrence: None)
  Receive Date: 20070706
  Receipt Date: 20070628
  Transmission Date: 20080115
  Serious: Yes (Death, Life-Threatening, Other)
  Sender: FDA-Public Use
  Company Number: JP-JNJFOC-20070605946

PATIENT
  Age: 53 Year
  Sex: Male

DRUGS (2)
  1. RISPERDAL [Suspect]
     Indication: DELIRIUM
     Route: 048
  2. HALDOL [Suspect]
     Indication: DELIRIUM
     Route: 042

REACTIONS (5)
  - DRUG WITHDRAWAL SYNDROME [None]
  - PARKINSONISM [None]
  - PNEUMONIA STAPHYLOCOCCAL [None]
  - RESPIRATORY DYSKINESIA [None]
  - TARDIVE DYSKINESIA [None]
